FAERS Safety Report 7628966-7 (Version None)
Quarter: 2011Q3

REPORT INFORMATION
  Report Type: 
  Country: None (occurrence: None)
  Receive Date: 20110722
  Receipt Date: 20110711
  Transmission Date: 20111222
  Serious: Yes (Death, Congenital Anomaly)
  Sender: FDA-Public Use
  Company Number: US-AMGEN-USASP2011033572

PATIENT

DRUGS (1)
  1. ENBREL [Suspect]
     Dosage: 50 MG, QWK
     Route: 064
     Dates: start: 20060601, end: 20110526

REACTIONS (3)
  - INTRA-UTERINE DEATH [None]
  - ABORTION SPONTANEOUS [None]
  - CYTOGENETIC ABNORMALITY [None]
